FAERS Safety Report 25636648 (Version 1)
Quarter: 2025Q3

REPORT INFORMATION
  Report Type: Spontaneous
  Country: US (occurrence: US)
  Receive Date: 20250804
  Receipt Date: 20250804
  Transmission Date: 20251021
  Serious: Yes (Death, Hospitalization)
  Sender: AMGEN
  Company Number: US-AMGEN-USASP2025151499

PATIENT
  Age: 79 Year
  Sex: Female

DRUGS (3)
  1. ROMIPLOSTIM [Suspect]
     Active Substance: ROMIPLOSTIM
     Indication: Immune thrombocytopenia
     Route: 065
  2. DEXAMETHASONE [Concomitant]
     Active Substance: DEXAMETHASONE
     Indication: Immune thrombocytopenia
     Route: 040
  3. Immunoglobulin [Concomitant]
     Indication: Immune thrombocytopenia
     Route: 040

REACTIONS (3)
  - Hepatic angiosarcoma [Fatal]
  - Coagulopathy [Unknown]
  - Drug ineffective [Unknown]
